FAERS Safety Report 26185658 (Version 1)
Quarter: 2025Q4

REPORT INFORMATION
  Report Type: Spontaneous
  Country: US (occurrence: None)
  Receive Date: 20251219
  Receipt Date: 20251219
  Transmission Date: 20260118
  Serious: Yes (Other)
  Sender: FDA-CTU
  Company Number: None

PATIENT
  Age: 54 Year
  Sex: Male
  Weight: 83.25 kg

DRUGS (4)
  1. ESCITALOPRAM OXALATE [Suspect]
     Active Substance: ESCITALOPRAM OXALATE
     Indication: Anxiety
     Dosage: OTHER QUANTITY : 30 TABLET(S);?FREQUENCY : DAILY;
     Route: 048
     Dates: start: 20251212, end: 20251216
  2. DEVICE [Concomitant]
     Active Substance: DEVICE
  3. OMEGA 3 [Concomitant]
     Active Substance: CAPSAICIN
  4. VITAMINS [Concomitant]
     Active Substance: VITAMINS

REACTIONS (5)
  - Insomnia [None]
  - Panic reaction [None]
  - Restlessness [None]
  - Palpitations [None]
  - Cognitive disorder [None]

NARRATIVE: CASE EVENT DATE: 20251217
